FAERS Safety Report 5100256-6 (Version None)
Quarter: 2006Q3

REPORT INFORMATION
  Report Type: 
  Country: None (occurrence: None)
  Receive Date: 20060731
  Receipt Date: 20060515
  Transmission Date: 20061208
  Serious: No
  Sender: FDA-Public Use
  Company Number: 2006PV013837

PATIENT
  Age: 77 Year
  Sex: Male
  Weight: 74.3899 kg

DRUGS (5)
  1. BYETTA [Suspect]
     Indication: DIABETES MELLITUS NON-INSULIN-DEPENDENT
     Dosage: 5 MCG;BID;SC
     Route: 058
     Dates: start: 20060504
  2. LANTUS [Concomitant]
  3. AMARYL [Concomitant]
  4. AVANDIA [Concomitant]
  5. COZAAR [Concomitant]

REACTIONS (6)
  - DISCOMFORT [None]
  - DYSPEPSIA [None]
  - FLATULENCE [None]
  - NAUSEA [None]
  - VOMITING [None]
  - WEIGHT DECREASED [None]
